FAERS Safety Report 10581475 (Version 1)
Quarter: 2014Q4

REPORT INFORMATION
  Report Type: Spontaneous
  Country: US (occurrence: None)
  Receive Date: 20141112
  Receipt Date: 20141112
  Transmission Date: 20150529
  Serious: Yes (Other)
  Sender: FDA-Public Use
  Company Number: None

PATIENT
  Age: 63 Year
  Sex: Female
  Weight: 97.52 kg

DRUGS (1)
  1. JANUVIA [Suspect]
     Active Substance: SITAGLIPTIN PHOSPHATE
     Indication: TYPE 2 DIABETES MELLITUS
     Dosage: 1 PILL
     Route: 048
     Dates: start: 20141025, end: 20141111

REACTIONS (7)
  - Vision blurred [None]
  - Blood glucose increased [None]
  - Headache [None]
  - No therapeutic response [None]
  - Polyuria [None]
  - Hunger [None]
  - Thirst [None]

NARRATIVE: CASE EVENT DATE: 20141111
